FAERS Safety Report 5151923-X (Version None)
Quarter: 2006Q4

REPORT INFORMATION
  Report Type: 
  Country: None (occurrence: None)
  Receive Date: 20061103
  Receipt Date: 20061019
  Transmission Date: 20070319
  Serious: Yes (Hospitalization)
  Sender: FDA-Public Use
  Company Number: 200610798

PATIENT
  Sex: Male

DRUGS (1)
  1. VIVAGLOBIN [Suspect]
     Dosage: SC
     Route: 058

REACTIONS (4)
  - DRUG INTOLERANCE [None]
  - MIGRAINE [None]
  - NAUSEA [None]
  - VOMITING [None]
